FAERS Safety Report 8826908 (Version 1)
Quarter: 2012Q4

REPORT INFORMATION
  Report Type: 
  Country: US (occurrence: US)
  Receive Date: 20121008
  Receipt Date: 20121008
  Transmission Date: 20130627
  Serious: No
  Sender: FDA-Public Use
  Company Number: US-009507513-1209USA008108

PATIENT
  Sex: Male

DRUGS (13)
  1. PEG-INTRON [Suspect]
     Dosage: 80 Microgram, qw
     Route: 058
     Dates: start: 201205
  2. RIBASPHERE [Suspect]
  3. NEUPOGEN [Concomitant]
  4. PROCRIT [Concomitant]
  5. VITAMINS (UNSPECIFIED) [Concomitant]
  6. PANTOPRAZOLE [Concomitant]
  7. TRAMADOL HYDROCHLORIDE [Concomitant]
  8. ALBUTEROL [Concomitant]
  9. LEXAPRO [Concomitant]
  10. PROGRAF [Concomitant]
  11. VITAMIN D (UNSPECIFIED) [Concomitant]
  12. CALCIUM (UNSPECIFIED) (+) VITAMIN D (UNSPECIFIED) [Concomitant]
  13. MAGNESIUM (UNSPECIFIED) [Concomitant]
     Dosage: UNK

REACTIONS (7)
  - Tongue blistering [Not Recovered/Not Resolved]
  - Anaemia [Not Recovered/Not Resolved]
  - Nausea [Not Recovered/Not Resolved]
  - Vomiting [Not Recovered/Not Resolved]
  - Diarrhoea [Not Recovered/Not Resolved]
  - Fatigue [Not Recovered/Not Resolved]
  - Depressed mood [Not Recovered/Not Resolved]
